FAERS Safety Report 14405321 (Version 2)
Quarter: 2018Q1

REPORT INFORMATION
  Report Type: Report from Study
  Country: CA (occurrence: CA)
  Receive Date: 20180118
  Receipt Date: 20180219
  Transmission Date: 20180509
  Serious: Yes (Death, Other)
  Sender: FDA-Public Use
  Company Number: CA-BRISTOL-MYERS SQUIBB COMPANY-BMS-2018-002276

PATIENT
  Sex: Female

DRUGS (1)
  1. DASATINIB. [Suspect]
     Active Substance: DASATINIB
     Indication: CHRONIC MYELOID LEUKAEMIA
     Dosage: 140 MG, QD
     Route: 048
     Dates: start: 20160623

REACTIONS (2)
  - Prescribed underdose [Unknown]
  - Death [Fatal]
